FAERS Safety Report 8390255-3 (Version None)
Quarter: 2012Q2

REPORT INFORMATION
  Report Type: 
  Country: None (occurrence: None)
  Receive Date: 20120529
  Receipt Date: 20120523
  Transmission Date: 20120825
  Serious: Yes (Other)
  Sender: FDA-Public Use
  Company Number: US-PFIZER INC-2012125834

PATIENT

DRUGS (2)
  1. DETROL LA [Suspect]
     Dosage: UNK
  2. LIPITOR [Suspect]
     Dosage: UNK

REACTIONS (1)
  - DEMENTIA ALZHEIMER'S TYPE [None]
